FAERS Safety Report 11104680 (Version 1)
Quarter: 2015Q2

REPORT INFORMATION
  Report Type: Spontaneous
  Country: US (occurrence: US)
  Receive Date: 20150511
  Receipt Date: 20150511
  Transmission Date: 20150821
  Serious: Yes (Hospitalization, Other)
  Sender: FDA-Public Use
  Company Number: US-009507513-1203USA00767

PATIENT
  Sex: Female
  Weight: 53.74 kg

DRUGS (4)
  1. BONIVA [Suspect]
     Active Substance: IBANDRONATE SODIUM
     Dates: start: 2002, end: 2010
  2. IBANDRONATE SODIUM. [Suspect]
     Active Substance: IBANDRONATE SODIUM
     Dates: start: 2002, end: 2010
  3. FOSAMAX [Suspect]
     Active Substance: ALENDRONATE SODIUM
     Route: 048
     Dates: start: 2002, end: 2010
  4. FOSAMAX [Suspect]
     Active Substance: ALENDRONATE SODIUM
     Indication: OSTEOPOROSIS
     Dosage: 70 MG, QW
     Route: 048
     Dates: start: 20020127, end: 2010

REACTIONS (40)
  - Spinal operation [Unknown]
  - Mitral valve prolapse [Unknown]
  - Cystitis [Not Recovered/Not Resolved]
  - Dizziness [Not Recovered/Not Resolved]
  - Femur fracture [Unknown]
  - Femur fracture [Unknown]
  - Staphylococcal infection [Unknown]
  - Pulmonary fibrosis [Unknown]
  - Nausea [Unknown]
  - Intramedullary rod insertion [Unknown]
  - Intramedullary rod insertion [Unknown]
  - Sputum purulent [Not Recovered/Not Resolved]
  - Supraventricular tachycardia [Unknown]
  - Drug intolerance [Unknown]
  - Fatigue [Unknown]
  - Hypertension [Unknown]
  - Renal failure [Unknown]
  - Femur fracture [Unknown]
  - Vitamin B12 deficiency [Unknown]
  - Hiatus hernia [Unknown]
  - Intramedullary rod insertion [Unknown]
  - Femur fracture [Unknown]
  - Bronchiectasis [Not Recovered/Not Resolved]
  - Deafness [Unknown]
  - Neck pain [Unknown]
  - Iron deficiency anaemia [Not Recovered/Not Resolved]
  - Gastrooesophageal reflux disease [Unknown]
  - Removal of internal fixation [Unknown]
  - Pneumonia [Unknown]
  - Fall [Unknown]
  - Decreased appetite [Unknown]
  - Malaise [Unknown]
  - Back pain [Not Recovered/Not Resolved]
  - Femur fracture [Unknown]
  - Fracture nonunion [Unknown]
  - Arthritis [Not Recovered/Not Resolved]
  - Varicose vein operation [Unknown]
  - Cataract operation [Unknown]
  - Biopsy breast [Unknown]
  - Culture urine positive [Unknown]

NARRATIVE: CASE EVENT DATE: 200202
